FAERS Safety Report 6534277-3 (Version None)
Quarter: 2009Q4

REPORT INFORMATION
  Report Type: 
  Country: None (occurrence: None)
  Receive Date: 20091214
  Receipt Date: 20081027
  Transmission Date: 20100525
  Serious: Yes (Hospitalization)
  Sender: FDA-Public Use
  Company Number: 558678

PATIENT
  Age: 51 Year
  Sex: Male
  Weight: 63 kg

DRUGS (12)
  1. PEGASYS [Suspect]
     Indication: HEPATITIS C
     Dosage: 0.5 ML 1 PER WEEK SUBCUTANEOUS
     Route: 058
     Dates: start: 20080225, end: 20080806
  2. COPEGUS [Suspect]
     Indication: HEPATITIS C
     Dosage: 400 MG 2 PER DAY ORAL
     Route: 048
     Dates: start: 20080225, end: 20080806
  3. PROCRIT [Concomitant]
  4. ANTIBIOTIC NOS (ANTIBIOTIC NOS) [Concomitant]
  5. RESTORIL [Concomitant]
  6. VALIUM [Concomitant]
  7. UROXATRAL [Concomitant]
  8. SENOKOT [Concomitant]
  9. FOLIC ACID [Concomitant]
  10. SUPPLEMENTS (SUPPLEMENTS) [Concomitant]
  11. COLACE (DOCUSATE SODIUM) [Concomitant]
  12. DULCOLAX (*BISACODYL/*MAGNESIUM HYDROXIDE/^SODIUM PICOSULFATE) [Concomitant]

REACTIONS (10)
  - ABDOMINAL PAIN [None]
  - BLOOD POTASSIUM DECREASED [None]
  - BLOOD SODIUM DECREASED [None]
  - CHEST PAIN [None]
  - CHILLS [None]
  - DIARRHOEA [None]
  - HYPERHIDROSIS [None]
  - NAUSEA [None]
  - POLLAKIURIA [None]
  - URINARY TRACT INFECTION [None]
